FAERS Safety Report 5250297-3 (Version None)
Quarter: 2007Q1

REPORT INFORMATION
  Report Type: 
  Country: None (occurrence: None)
  Receive Date: 20070228
  Receipt Date: 20060404
  Transmission Date: 20070707
  Serious: No
  Sender: FDA-Public Use
  Company Number: US-GLAXOSMITHKLINE-A0598250A

PATIENT
  Age: 43 Year
  Sex: Female

DRUGS (5)
  1. LAMICTAL [Suspect]
     Indication: BIPOLAR DISORDER
     Dosage: 100MG TWICE PER DAY
     Route: 048
     Dates: start: 20060317
  2. EFFEXOR [Concomitant]
  3. PRILOSEC [Concomitant]
  4. LIPITOR [Concomitant]
  5. DENOSINE (GANCICLOVIR) [Concomitant]

REACTIONS (3)
  - PITYRIASIS ROSEA [None]
  - RASH PRURITIC [None]
  - URTICARIA [None]
